FAERS Safety Report 14085521 (Version 1)
Quarter: 2017Q4

REPORT INFORMATION
  Report Type: Report from Study
  Country: IN (occurrence: IN)
  Receive Date: 20171013
  Receipt Date: 20171013
  Transmission Date: 20180321
  Serious: Yes (Hospitalization, Other)
  Sender: FDA-Public Use
  Company Number: IN-AUROBINDO-AUR-APL-2017-41890

PATIENT
  Age: 38 Year
  Sex: Male
  Weight: 63 kg

DRUGS (1)
  1. METHYLPREDNISOLONE ACETATE INJECTABLE SUSPENSION USP 80MG/ML [Suspect]
     Active Substance: METHYLPREDNISOLONE ACETATE
     Indication: PRODUCT USED FOR UNKNOWN INDICATION
     Dosage: 1 ML, CONTAINS 80MG OF METHYLPREDNISOLONE ACETATE
     Route: 030
     Dates: start: 20170718, end: 20170718

REACTIONS (4)
  - Appendiceal abscess [Recovered/Resolved]
  - Appendicitis [Recovered/Resolved]
  - Vomiting [Recovered/Resolved]
  - Abdominal pain [Recovered/Resolved]

NARRATIVE: CASE EVENT DATE: 20170917
